FAERS Safety Report 23168007 (Version 2)
Quarter: 2024Q2

REPORT INFORMATION
  Report Type: Spontaneous
  Country: DE (occurrence: DE)
  Receive Date: 20231109
  Receipt Date: 20240604
  Transmission Date: 20240716
  Serious: Yes (Life-Threatening, Hospitalization, Other)
  Sender: FDA-Public Use
  Company Number: DE-BoehringerIngelheim-2023-BI-271901

PATIENT
  Age: 73 Year
  Sex: Male
  Weight: 104 kg

DRUGS (10)
  1. JARDIANCE [Suspect]
     Active Substance: EMPAGLIFLOZIN
     Indication: Myocardial infarction
     Route: 048
     Dates: end: 20230620
  2. TAMSULOSIN [Concomitant]
     Active Substance: TAMSULOSIN
     Indication: Benign prostatic hyperplasia
  3. ASPIRIN [Concomitant]
     Active Substance: ASPIRIN
     Indication: Product used for unknown indication
     Route: 048
     Dates: start: 202010
  4. CANDESARTAN [Concomitant]
     Active Substance: CANDESARTAN
     Indication: Medical device implantation
     Route: 048
     Dates: start: 202010
  5. Metoprolol 23.75 mg [Concomitant]
     Indication: Medical device implantation
     Dosage: 1X0.5 TABLET
     Route: 048
     Dates: start: 202010
  6. PRASUGREL [Concomitant]
     Active Substance: PRASUGREL
     Indication: Vascular stent thrombosis
     Route: 048
     Dates: start: 202303
  7. ROSUVASTATIN [Concomitant]
     Active Substance: ROSUVASTATIN
     Indication: Product used for unknown indication
     Route: 048
  8. Nustendi 180/10 mg [Concomitant]
     Indication: Product used for unknown indication
     Route: 048
  9. PANTOPRAZOLE SODIUM [Concomitant]
     Active Substance: PANTOPRAZOLE SODIUM
     Indication: Product used for unknown indication
  10. L-Thyroxin 75 mcg [Concomitant]
     Indication: Product used for unknown indication

REACTIONS (10)
  - Septic shock [Recovered/Resolved]
  - Urosepsis [Recovered/Resolved]
  - Body temperature increased [Unknown]
  - General physical health deterioration [Unknown]
  - Vomiting [Unknown]
  - Blood urine present [Unknown]
  - Chills [Recovering/Resolving]
  - Free prostate-specific antigen decreased [Recovered/Resolved]
  - Blood pressure decreased [Recovered/Resolved]
  - Off label use [Recovered/Resolved]

NARRATIVE: CASE EVENT DATE: 20230619
